FAERS Safety Report 9184419 (Version 1)
Quarter: 2012Q4

REPORT INFORMATION
  Report Type: 
  Country: US (occurrence: US)
  Receive Date: 20121101
  Receipt Date: 20121101
  Transmission Date: 20130627
  Serious: No
  Sender: FDA-Public Use
  Company Number: US-PFIZER INC-2012270859

PATIENT
  Age: 59 Year
  Sex: Female
  Weight: 88.44 kg

DRUGS (13)
  1. GABAPENTIN [Suspect]
     Indication: LEG PAIN
     Dosage: 300 mg, 3x/day
     Dates: start: 2012
  2. FISH OIL [Concomitant]
     Dosage: 1000 mg, daily
  3. BABY ASPIRIN [Concomitant]
     Indication: PROPHYLAXIS
     Dosage: 81 mg, daily
  4. IBUPROFEN [Concomitant]
     Indication: PAIN
     Dosage: UNK, as needed
  5. METOPROLOL [Concomitant]
     Dosage: splitting 25mg, 2x/day
  6. CITALOPRAM [Concomitant]
     Dosage: 20 mg, 2x/day
  7. SIMVASTATIN [Concomitant]
     Dosage: 40 mg, daily
  8. METFORMIN [Concomitant]
     Dosage: 100 mg, 2x/day
  9. LISINOPRIL [Concomitant]
     Dosage: 5 mg, daily
  10. CILOSTAZOL [Concomitant]
     Dosage: 50 mg, 2x/day
  11. ZOLPIDEM [Concomitant]
     Dosage: 10 mg, daily at night
  12. BUSPIRONE [Concomitant]
     Dosage: 30 mg(three tablets of 10mg), 2x/day
  13. VITAMIN B12 [Concomitant]
     Dosage: UNK, daily

REACTIONS (1)
  - Drug ineffective [Unknown]
